FAERS Safety Report 10152452 (Version 1)
Quarter: 2014Q2

REPORT INFORMATION
  Report Type: Spontaneous
  Country: KR (occurrence: None)
  Receive Date: 20140501
  Receipt Date: 20140501
  Transmission Date: 20141212
  Serious: Yes (Hospitalization)
  Sender: FDA-Public Use
  Company Number: 2315525

PATIENT
  Age: 76 Year
  Sex: Female

DRUGS (3)
  1. OXALIPLATIN [Suspect]
     Indication: COLORECTAL CANCER
     Dosage: NOT REPORTED, CYCLICAL, INTRAVENOUS DRIP?
     Route: 041
  2. FLUOROURACIL [Suspect]
     Indication: COLORECTAL CANCER
     Dosage: NOT REPORTED, CYCLICAL, INTRAVENOUS DRIP
     Route: 041
  3. SODIUM FOLINATE [Suspect]
     Indication: COLORECTAL CANCER
     Dosage: NOT REPORTED, CYCLICAL, INTRAVENOUS DRIP?
     Route: 041

REACTIONS (2)
  - Sarcoidosis [None]
  - Blood pressure systolic increased [None]
